FAERS Safety Report 5564621-5 (Version None)
Quarter: 2007Q4

REPORT INFORMATION
  Report Type: 
  Country: None (occurrence: None)
  Receive Date: 20071212
  Receipt Date: 20071205
  Transmission Date: 20080405
  Serious: Yes (Hospitalization)
  Sender: FDA-Public Use
  Company Number: 2007SP024324

PATIENT
  Age: 31 Year
  Sex: Female

DRUGS (3)
  1. BETAMATHASONE DIPROPIONATE [Suspect]
     Indication: PRURITUS
     Dosage: 1 DF;QD;TOP
     Route: 061
     Dates: start: 20071010, end: 20071013
  2. LAMISIL [Suspect]
     Indication: FUNGAL INFECTION
     Dosage: 250 MG;QD;PO
     Route: 048
     Dates: start: 20071010, end: 20071017
  3. CETIRIZINE HCL [Suspect]
     Indication: PRURITUS
     Dosage: 1 DF;QD;PO
     Route: 048
     Dates: start: 20071010, end: 20071024

REACTIONS (5)
  - ANTINUCLEAR ANTIBODY POSITIVE [None]
  - DERMATOSIS [None]
  - LICHENIFICATION [None]
  - RASH ERYTHEMATOUS [None]
  - TOXIC SKIN ERUPTION [None]
